FAERS Safety Report 4520024-3 (Version None)
Quarter: 2005Q1

REPORT INFORMATION
  Report Type: 
  Country: None (occurrence: None)
  Receive Date: 20041028
  Receipt Date: 20040707
  Transmission Date: 20050727
  Serious: Yes (Hospitalization)
  Sender: FDA-Public Use
  Company Number: US082580

PATIENT
  Age: 74 Year
  Sex: Female
  Weight: 61.5 kg

DRUGS (13)
  1. SENSIPAR [Suspect]
     Indication: HYPERPARATHYROIDISM SECONDARY
     Dosage: 30 MG, 1 IN 1 DAYS, PO
     Route: 048
     Dates: start: 20040617, end: 20040706
  2. PARICALCITROL [Concomitant]
  3. EZETIMIBE [Concomitant]
  4. EPOGEN [Concomitant]
  5. SEVELAMER HCL [Concomitant]
  6. PROPAFENONE HYDROCHLORIDE [Concomitant]
  7. ISOSORBIDE MONONITRATE [Concomitant]
  8. HYDRALAZINE HCL [Concomitant]
  9. GLYBURIDE [Concomitant]
  10. CLONIDINE [Concomitant]
  11. SOTALOL HYDROCHLORIDE [Concomitant]
  12. ROSIGLITAZONE MALEATE [Concomitant]
  13. NEPHRO-VITE [Concomitant]

REACTIONS (3)
  - BLOOD GLUCOSE INCREASED [None]
  - GRAND MAL CONVULSION [None]
  - HYPERKALAEMIA [None]
